FAERS Safety Report 7390656-6 (Version None)
Quarter: 2011Q2

REPORT INFORMATION
  Report Type: 
  Country: None (occurrence: None)
  Receive Date: 20110404
  Receipt Date: 20110325
  Transmission Date: 20111010
  Serious: No
  Sender: FDA-Public Use
  Company Number: US-BIOGENIDEC-2010BI040898

PATIENT
  Sex: Female

DRUGS (1)
  1. TYSABRI [Suspect]
     Indication: MULTIPLE SCLEROSIS
     Route: 042
     Dates: start: 20100804

REACTIONS (6)
  - VIRAL INFECTION [None]
  - GAIT DISTURBANCE [None]
  - DIZZINESS [None]
  - MIGRAINE [None]
  - DRUG INEFFECTIVE [None]
  - BALANCE DISORDER [None]
